FAERS Safety Report 14492412 (Version 2)
Quarter: 2018Q1

REPORT INFORMATION
  Report Type: Spontaneous
  Country: JP (occurrence: JP)
  Receive Date: 20180206
  Receipt Date: 20180312
  Transmission Date: 20180509
  Serious: Yes (Death, Other)
  Sender: FDA-Public Use
  Company Number: JP-PFIZER INC-2018050004

PATIENT
  Age: 64 Year
  Sex: Male

DRUGS (2)
  1. VFEND [Suspect]
     Active Substance: VORICONAZOLE
     Indication: INFECTION PROPHYLAXIS
     Dosage: UNK
  2. MINOCYCLINE [Suspect]
     Active Substance: MINOCYCLINE\MINOCYCLINE HYDROCHLORIDE
     Dosage: UNK

REACTIONS (7)
  - Cytomegalovirus enterocolitis [Unknown]
  - Cerebral toxoplasmosis [Unknown]
  - Death [Fatal]
  - Graft versus host disease in gastrointestinal tract [Unknown]
  - Stenotrophomonas sepsis [Unknown]
  - Condition aggravated [Unknown]
  - Organising pneumonia [Unknown]
